FAERS Safety Report 9631196 (Version 2)
Quarter: 2013Q4

REPORT INFORMATION
  Report Type: Report from Study
  Country: US (occurrence: US)
  Receive Date: 20131018
  Receipt Date: 20131018
  Transmission Date: 20140711
  Serious: Yes (Life-Threatening, Hospitalization, Disabling, Other)
  Sender: FDA-Public Use
  Company Number: US-ABBVIE-10P-163-0679009-00

PATIENT
  Age: 66 Year
  Sex: Male
  Weight: 79 kg

DRUGS (7)
  1. HUMIRA [Suspect]
     Indication: PSORIASIS
     Route: 058
     Dates: start: 20090724
  2. HUMIRA [Suspect]
     Route: 058
     Dates: start: 20100418, end: 20100816
  3. LIPITOR [Concomitant]
     Indication: HYPERCHOLESTEROLAEMIA
     Dates: start: 20091117
  4. TERAZOSIN [Concomitant]
     Indication: BENIGN PROSTATIC HYPERPLASIA
     Dates: start: 20060120
  5. BENAZEPRIL [Concomitant]
     Indication: BENIGN PROSTATIC HYPERPLASIA
     Dates: start: 20060120
  6. FINASTERIDE [Concomitant]
     Indication: BENIGN PROSTATIC HYPERPLASIA
     Dates: start: 20090122
  7. CIALIS [Concomitant]
     Indication: ERECTILE DYSFUNCTION
     Dates: start: 20090609

REACTIONS (1)
  - Atypical pneumonia [Recovered/Resolved]
